FAERS Safety Report 5765113-0 (Version None)
Quarter: 2008Q2

REPORT INFORMATION
  Report Type: 
  Country: None (occurrence: None)
  Receive Date: 20080611
  Receipt Date: 20080530
  Transmission Date: 20081010
  Serious: Yes (Other)
  Sender: FDA-Public Use
  Company Number: FR-JNJFOC-20080506276

PATIENT
  Age: 87 Year
  Sex: Female

DRUGS (6)
  1. TAVANIC [Suspect]
     Indication: PYELONEPHRITIS ACUTE
     Route: 048
  2. PREVISCAN [Interacting]
     Indication: ATRIAL FIBRILLATION
     Route: 048
  3. AUGMENTIN '125' [Interacting]
     Indication: PYELONEPHRITIS ACUTE
     Route: 048
  4. DIGOXIN [Concomitant]
     Indication: ATRIAL FIBRILLATION
     Route: 048
  5. CARDENSIEL [Concomitant]
     Route: 048
  6. TARDYFERON [Concomitant]
     Route: 048

REACTIONS (2)
  - DRUG INTERACTION [None]
  - INTERNATIONAL NORMALISED RATIO INCREASED [None]
